FAERS Safety Report 8312843-2 (Version None)
Quarter: 2012Q2

REPORT INFORMATION
  Report Type: 
  Country: None (occurrence: None)
  Receive Date: 20120426
  Receipt Date: 20120418
  Transmission Date: 20120825
  Serious: No
  Sender: FDA-Public Use
  Company Number: US-PFIZER INC-2012099915

PATIENT
  Sex: Female

DRUGS (2)
  1. CELEXA [Concomitant]
     Indication: DEPRESSION
     Dosage: UNK
  2. LYRICA [Suspect]
     Indication: FIBROMYALGIA
     Dosage: 150 MG, 2X/DAY (ONE TAKEN IN AM AND PM)

REACTIONS (2)
  - WEIGHT INCREASED [None]
  - HEADACHE [None]
